FAERS Safety Report 9142617 (Version 1)
Quarter: 2013Q1

REPORT INFORMATION
  Report Type: Spontaneous
  Country: GB (occurrence: GB)
  Receive Date: 20130306
  Receipt Date: 20130306
  Transmission Date: 20140127
  Serious: Yes (Hospitalization)
  Sender: FDA-Public Use
  Company Number: GB-JNJFOC-20130212791

PATIENT
  Age: 28 Year
  Sex: Male
  Weight: 61.8 kg

DRUGS (2)
  1. XEPLION [Suspect]
     Indication: SCHIZOPHRENIA
     Route: 030
  2. OMEPRAZOLE [Concomitant]
     Route: 065

REACTIONS (2)
  - Diabetic ketoacidosis [Recovering/Resolving]
  - Vomiting [Recovering/Resolving]
